FAERS Safety Report 6668844-3 (Version None)
Quarter: 2010Q2

REPORT INFORMATION
  Report Type: 
  Country: None (occurrence: None)
  Receive Date: 20100406
  Receipt Date: 20100402
  Transmission Date: 20101027
  Serious: Yes (Hospitalization)
  Sender: FDA-Public Use
  Company Number: FR-ROCHE-681208

PATIENT
  Sex: Female

DRUGS (13)
  1. BONIVA [Suspect]
     Indication: OSTEOPOROSIS
     Route: 042
     Dates: start: 20090908, end: 20091014
  2. LOVENOX [Concomitant]
     Indication: PELVIC FRACTURE
     Dosage: DRUG NAME: LOVENOX 4000 IU ANTI-XA 0.4 ML INJECTABLE SOLUTION.
     Route: 058
     Dates: start: 20091001, end: 20091016
  3. ANAFRANIL [Concomitant]
     Indication: DEPRESSION
     Route: 048
     Dates: start: 20070101
  4. DURAGESIC-100 [Concomitant]
  5. CACIT D3 [Concomitant]
  6. DAFALGAN [Concomitant]
  7. DEBRIDAT [Concomitant]
  8. FERO-GRAD [Concomitant]
  9. OMEPRAZOLE [Concomitant]
  10. SPECIAFOLDINE [Concomitant]
  11. TRANSIPEG [Concomitant]
  12. VOGALENE [Concomitant]
  13. EDUCTYL [Concomitant]

REACTIONS (3)
  - GLOSSITIS [None]
  - MOUTH ULCERATION [None]
  - RADIATION MUCOSITIS [None]
